FAERS Safety Report 11801645 (Version 1)
Quarter: 2015Q4

REPORT INFORMATION
  Report Type: Spontaneous
  Country: US (occurrence: US)
  Receive Date: 20151204
  Receipt Date: 20151204
  Transmission Date: 20160305
  Serious: No
  Sender: FDA-Public Use
  Company Number: US-JNJFOC-20151022799

PATIENT
  Age: 86 Year
  Sex: Female
  Weight: 56.7 kg

DRUGS (2)
  1. SIMVASTATIN. [Concomitant]
     Active Substance: SIMVASTATIN
     Indication: BLOOD CHOLESTEROL INCREASED
     Route: 065
  2. KETOCONAZOLE. [Suspect]
     Active Substance: KETOCONAZOLE
     Indication: PRURITUS
     Route: 061
     Dates: start: 201510

REACTIONS (5)
  - Physical product label issue [Not Recovered/Not Resolved]
  - Drug ineffective [Not Recovered/Not Resolved]
  - Scratch [Not Recovered/Not Resolved]
  - Application site pain [Not Recovered/Not Resolved]
  - Product lot number issue [Not Recovered/Not Resolved]

NARRATIVE: CASE EVENT DATE: 201510
